FAERS Safety Report 15916280 (Version 1)
Quarter: 2019Q1

REPORT INFORMATION
  Report Type: Spontaneous
  Country: PT (occurrence: PT)
  Receive Date: 20190204
  Receipt Date: 20190204
  Transmission Date: 20190417
  Serious: Yes (Hospitalization)
  Sender: FDA-Public Use
  Company Number: PT-MYLANLABS-2019M1010380

PATIENT
  Age: 72 Year
  Sex: Male

DRUGS (3)
  1. LAMIVUDINE. [Suspect]
     Active Substance: LAMIVUDINE
     Indication: HEPATITIS B REACTIVATION
     Dosage: UNK
  2. BORTEZOMIB. [Concomitant]
     Active Substance: BORTEZOMIB
     Indication: PRODUCT USED FOR UNKNOWN INDICATION
     Dosage: UNK
  3. LAMIVUDINE. [Suspect]
     Active Substance: LAMIVUDINE
     Indication: PROPHYLAXIS

REACTIONS (1)
  - Oedema peripheral [Recovering/Resolving]
